FAERS Safety Report 13709986 (Version 1)
Quarter: 2017Q2

REPORT INFORMATION
  Report Type: Spontaneous
  Country: US (occurrence: US)
  Receive Date: 20170630
  Receipt Date: 20170630
  Transmission Date: 20170830
  Serious: No
  Sender: FDA-Public Use
  Company Number: None

PATIENT
  Age: 59 Year
  Sex: Male

DRUGS (1)
  1. GILENYA [Suspect]
     Active Substance: FINGOLIMOD HYDROCHLORIDE

REACTIONS (4)
  - Heart rate decreased [None]
  - Dizziness [None]
  - Extra dose administered [None]
  - Blood pressure decreased [None]

NARRATIVE: CASE EVENT DATE: 20170629
